FAERS Safety Report 19573050 (Version 2)
Quarter: 2021Q4

REPORT INFORMATION
  Report Type: Report from Study
  Country: US (occurrence: US)
  Receive Date: 20210716
  Receipt Date: 20211014
  Transmission Date: 20220303
  Serious: Yes (Other)
  Sender: FDA-Public Use
  Company Number: US-JAZZ-2021-US-012619

PATIENT
  Sex: Male

DRUGS (5)
  1. XYREM [Suspect]
     Active Substance: SODIUM OXYBATE
     Indication: Narcolepsy
     Dosage: 2.25 GRAM, BID
     Route: 048
     Dates: start: 201008, end: 201008
  2. XYREM [Suspect]
     Active Substance: SODIUM OXYBATE
     Dosage: DOSE ADJUSTMENT
     Route: 048
     Dates: start: 201008, end: 201009
  3. XYREM [Suspect]
     Active Substance: SODIUM OXYBATE
     Dosage: 4.5 GRAM, BID
     Route: 048
     Dates: start: 201009, end: 201504
  4. XYREM [Suspect]
     Active Substance: SODIUM OXYBATE
     Dosage: 4.5 GRAM, BID
     Route: 048
     Dates: start: 201511
  5. LYRICA [Concomitant]
     Active Substance: PREGABALIN

REACTIONS (7)
  - Neuropathy peripheral [Not Recovered/Not Resolved]
  - Road traffic accident [Unknown]
  - Fractured coccyx [Unknown]
  - Intervertebral disc protrusion [Not Recovered/Not Resolved]
  - Swelling [Not Recovered/Not Resolved]
  - Blood cholesterol abnormal [Recovered/Resolved]
  - Nerve compression [Unknown]
